FAERS Safety Report 4876442-7 (Version None)
Quarter: 2005Q4

REPORT INFORMATION
  Report Type: 
  Country: None (occurrence: None)
  Receive Date: 20051206
  Receipt Date: 20051013
  Transmission Date: 20060501
  Serious: Yes (Hospitalization)
  Sender: FDA-Public Use
  Company Number: USA0508104944

PATIENT
  Age: 55 Year
  Sex: Female

DRUGS (1)
  1. CYMBALTA [Suspect]
     Dosage: 60 MG
     Dates: start: 20050524, end: 20050601

REACTIONS (1)
  - SUICIDAL IDEATION [None]
